FAERS Safety Report 8314523-6 (Version None)
Quarter: 2012Q2

REPORT INFORMATION
  Report Type: 
  Country: None (occurrence: None)
  Receive Date: 20120426
  Receipt Date: 20120425
  Transmission Date: 20120825
  Serious: Yes (Other)
  Sender: FDA-Public Use
  Company Number: BR-ROCHE-1063028

PATIENT
  Age: 6 Year

DRUGS (3)
  1. ACTEMRA [Suspect]
     Indication: JUVENILE ARTHRITIS
  2. METHOTREXATE [Concomitant]
     Indication: JUVENILE ARTHRITIS
  3. LEFLUNOMIDE [Concomitant]
     Indication: JUVENILE ARTHRITIS

REACTIONS (1)
  - HEPATITIS [None]
